FAERS Safety Report 16797856 (Version 7)
Quarter: 2021Q2

REPORT INFORMATION
  Report Type: Spontaneous
  Country: US (occurrence: US)
  Receive Date: 20190912
  Receipt Date: 20210521
  Transmission Date: 20210716
  Serious: Yes (Hospitalization, Disabling, Other)
  Sender: FDA-Public Use
  Company Number: US-HIKMA PHARMACEUTICALS USA INC.-US-H14001-19-04811

PATIENT
  Age: 61 Year
  Sex: Female

DRUGS (6)
  1. BOSENTAN. [Suspect]
     Active Substance: BOSENTAN
     Indication: PRODUCT USED FOR UNKNOWN INDICATION
     Dosage: STARTED 20 YEARS AGO
     Route: 048
  2. LEVOTHYROXINE. [Concomitant]
     Active Substance: LEVOTHYROXINE
     Indication: THYROID DISORDER
     Dosage: UNKNOWN
     Route: 065
  3. AMLODIPINE [Concomitant]
     Active Substance: AMLODIPINE BESYLATE
     Indication: LUNG DISORDER
     Dosage: UNKNOWN
     Route: 065
  4. PROLIA [Concomitant]
     Active Substance: DENOSUMAB
     Indication: OSTEOPOROSIS
     Dosage: UNKNOWN
     Route: 065
  5. FUROSEMIDE. [Concomitant]
     Active Substance: FUROSEMIDE
     Indication: PRODUCT USED FOR UNKNOWN INDICATION
     Dosage: UNKNOWN
     Route: 065
  6. ELIQUIS [Concomitant]
     Active Substance: APIXABAN
     Indication: THROMBOSIS
     Dosage: UNKNOWN
     Route: 065

REACTIONS (15)
  - Disability [Unknown]
  - Gait inability [Unknown]
  - Malaise [Unknown]
  - Palpitations [Not Recovered/Not Resolved]
  - Atrial fibrillation [Not Recovered/Not Resolved]
  - Thyroid disorder [Unknown]
  - Feeling of body temperature change [Recovered/Resolved]
  - Dry eye [Unknown]
  - Joint dislocation [Recovered/Resolved]
  - Lower limb fracture [Recovered/Resolved]
  - Menopause [Recovered/Resolved]
  - Product dose omission issue [Unknown]
  - Wrist fracture [Recovered/Resolved]
  - Insomnia [Unknown]
  - Retinal detachment [Unknown]

NARRATIVE: CASE EVENT DATE: 201903
